APPROVED DRUG PRODUCT: IBUPROFEN
Active Ingredient: IBUPROFEN
Strength: 200MG
Dosage Form/Route: TABLET;ORAL
Application: A206989 | Product #001
Applicant: STRIDES PHARMA GLOBAL PTE LTD
Approved: Jun 29, 2018 | RLD: No | RS: No | Type: DISCN